FAERS Safety Report 15973600 (Version 3)
Quarter: 2020Q2

REPORT INFORMATION
  Report Type: Report from Study
  Country: US (occurrence: US)
  Receive Date: 20190216
  Receipt Date: 20200401
  Transmission Date: 20200713
  Serious: Yes (Other)
  Sender: FDA-Public Use
  Company Number: PHEH2019US007166

PATIENT
  Sex: Female

DRUGS (1)
  1. AFINITOR [Suspect]
     Active Substance: EVEROLIMUS
     Indication: PRODUCT USED FOR UNKNOWN INDICATION
     Route: 065

REACTIONS (6)
  - Neoplasm malignant [Unknown]
  - Metastases to bone [Unknown]
  - Lung neoplasm malignant [Unknown]
  - Pneumonia [Unknown]
  - Influenza [Unknown]
  - Second primary malignancy [Unknown]
